FAERS Safety Report 21532271 (Version 1)
Quarter: 2022Q4

REPORT INFORMATION
  Report Type: Other
  Country: KZ (occurrence: KZ)
  Receive Date: 20221101
  Receipt Date: 20221101
  Transmission Date: 20230112
  Serious: Yes (Hospitalization)
  Sender: FDA-Public Use
  Company Number: KZ-MACLEODS PHARMA EU LTD-MAC2022038061

PATIENT

DRUGS (3)
  1. PYRAZINAMIDE [Suspect]
     Active Substance: PYRAZINAMIDE
     Indication: Pulmonary tuberculosis
     Dosage: UNK
     Route: 065
  2. ETHAMBUTOL [Suspect]
     Active Substance: ETHAMBUTOL HYDROCHLORIDE
     Indication: Pulmonary tuberculosis
     Dosage: UNK (PAVLODAR PHARMACEUTICAL PLANT; KAZAKHSTAN)
     Route: 065
  3. ISONIAZID\RIFAMPIN [Suspect]
     Active Substance: ISONIAZID\RIFAMPIN
     Indication: Pulmonary tuberculosis
     Dosage: UNK (2KPDF)
     Route: 065

REACTIONS (1)
  - Adverse drug reaction [Unknown]
